FAERS Safety Report 15768503 (Version 1)
Quarter: 2018Q4

REPORT INFORMATION
  Report Type: Report from Study
  Country: None (occurrence: US)
  Receive Date: 20181227
  Receipt Date: 20181227
  Transmission Date: 20190205
  Serious: Yes (Other)
  Sender: FDA-Public Use
  Company Number: US-ABBVIE-18K-163-2597339-00

PATIENT
  Sex: Male

DRUGS (1)
  1. HUMIRA [Suspect]
     Active Substance: ADALIMUMAB
     Indication: PSORIATIC ARTHROPATHY
     Route: 058

REACTIONS (10)
  - Intestinal mass [Unknown]
  - Testicular disorder [Unknown]
  - Spinal column stenosis [Unknown]
  - Cardiomyopathy [Unknown]
  - Heart valve incompetence [Unknown]
  - Mass [Unknown]
  - Ventricular failure [Unknown]
  - Thyroid mass [Unknown]
  - Cardiac failure congestive [Unknown]
  - Stomach mass [Unknown]
